FAERS Safety Report 15836013 (Version 5)
Quarter: 2020Q3

REPORT INFORMATION
  Report Type: Spontaneous
  Country: FR (occurrence: FR)
  Receive Date: 20190117
  Receipt Date: 20190527
  Transmission Date: 20201105
  Serious: No
  Sender: FDA-Public Use
  Company Number: FR-ROCHE-2244598

PATIENT
  Age: 43 Year
  Sex: Male

DRUGS (4)
  1. TYSABRI [Suspect]
     Active Substance: NATALIZUMAB
     Indication: MULTIPLE SCLEROSIS
     Dosage: DATE OF MOST RECENT DOSE: /OCT/2014
     Route: 042
     Dates: start: 201208, end: 201410
  2. FINGOLIMOD. [Suspect]
     Active Substance: FINGOLIMOD
     Indication: MULTIPLE SCLEROSIS
     Dosage: DATE OF MOST RECENT DOSE: /MAR/2017
     Route: 065
     Dates: start: 201411, end: 201703
  3. MABTHERA [Suspect]
     Active Substance: RITUXIMAB
     Indication: MULTIPLE SCLEROSIS
     Route: 065
     Dates: start: 201703
  4. MABTHERA [Suspect]
     Active Substance: RITUXIMAB
     Route: 065
     Dates: start: 201703

REACTIONS (4)
  - Intentional product use issue [Unknown]
  - Secondary progressive multiple sclerosis [Not Recovered/Not Resolved]
  - Off label use [Unknown]
  - Hepatitis A [Unknown]
